FAERS Safety Report 9509768 (Version 1)
Quarter: 2013Q3

REPORT INFORMATION
  Report Type: Spontaneous
  Country: US (occurrence: US)
  Receive Date: 20130909
  Receipt Date: 20130909
  Transmission Date: 20140515
  Serious: Yes (Other)
  Sender: FDA-Public Use
  Company Number: US-BRISTOL-MYERS SQUIBB COMPANY-18857698

PATIENT
  Age: 38 Year
  Sex: Female

DRUGS (7)
  1. ABILIFY [Suspect]
     Indication: DEPRESSION
     Dosage: ON 5MG FOR 1.5YRS?INTER FOR YR AND STARTED 3WKS AGO WITH 2MG
  2. PRISTIQ [Concomitant]
  3. CONCERTA [Concomitant]
  4. RITALIN [Concomitant]
  5. ATIVAN [Concomitant]
  6. MULTIVITAMIN [Concomitant]
  7. KLONOPIN [Concomitant]

REACTIONS (1)
  - Weight increased [Unknown]
